FAERS Safety Report 20092351 (Version 3)
Quarter: 2021Q4

REPORT INFORMATION
  Report Type: Spontaneous
  Country: DE (occurrence: DE)
  Receive Date: 20211119
  Receipt Date: 20211221
  Transmission Date: 20220303
  Serious: Yes (Hospitalization, Other)
  Sender: FDA-Public Use
  Company Number: None

PATIENT
  Age: 47 Year
  Sex: Female
  Weight: 56 kg

DRUGS (4)
  1. LAMOTRIGINE [Suspect]
     Active Substance: LAMOTRIGINE
     Indication: Depression
     Dosage: 25 MILLIGRAM, QD, 25 MG TAGLICH, START 04-JUL-2021
     Route: 048
     Dates: start: 20210704, end: 20210717
  2. LAMOTRIGINE [Suspect]
     Active Substance: LAMOTRIGINE
     Indication: Depressed mood
     Dosage: 50 MILLIGRAM, QD, 50 MG T?GLICH, START 18-JUL-2021
     Dates: start: 20210718, end: 20210719
  3. COMIRNATY [Suspect]
     Active Substance: TOZINAMERAN
     Indication: Product used for unknown indication
     Dosage: UNK(1. IMPFUNG )
     Dates: start: 20210702
  4. LEVOTHYROXINE SODIUM [Concomitant]
     Active Substance: LEVOTHYROXINE SODIUM
     Indication: Hypothyroidism
     Dosage: 88 MICROGRAM
     Route: 048
     Dates: start: 202105

REACTIONS (42)
  - Hypophagia [Unknown]
  - Lip swelling [Recovering/Resolving]
  - Genital burning sensation [Recovered/Resolved]
  - Skin exfoliation [Unknown]
  - Mouth swelling [Recovering/Resolving]
  - Eyelid oedema [Not Recovered/Not Resolved]
  - Gingival swelling [Unknown]
  - Fluid intake reduced [Unknown]
  - Abscess oral [Recovering/Resolving]
  - Vasculitis [Unknown]
  - Circumoral swelling [Recovering/Resolving]
  - Eye inflammation [Not Recovered/Not Resolved]
  - Loss of personal independence in daily activities [Unknown]
  - Erythema multiforme [Unknown]
  - Fuchs^ syndrome [Unknown]
  - Symblepharon [Not Recovered/Not Resolved]
  - Dysuria [Recovered/Resolved]
  - Pain [Unknown]
  - Photophobia [Not Recovered/Not Resolved]
  - Ocular hyperaemia [Not Recovered/Not Resolved]
  - Ocular discomfort [Not Recovered/Not Resolved]
  - Epistaxis [Recovering/Resolving]
  - Dry eye [Not Recovered/Not Resolved]
  - Visual impairment [Not Recovered/Not Resolved]
  - Swelling face [Recovering/Resolving]
  - Throat tightness [Recovering/Resolving]
  - Headache [Recovered/Resolved]
  - Rash [Recovering/Resolving]
  - Vision blurred [Unknown]
  - Somnolence [Unknown]
  - Depression [Unknown]
  - Oral mucosa erosion [Unknown]
  - Genital erythema [Unknown]
  - Oral pruritus [Unknown]
  - Genital swelling [Unknown]
  - Rash macular [Unknown]
  - Drug intolerance [Unknown]
  - Ear discomfort [Unknown]
  - Dysphagia [Unknown]
  - Oral disorder [Unknown]
  - Lymphadenopathy [Unknown]
  - Dry skin [Unknown]

NARRATIVE: CASE EVENT DATE: 20210701
